FAERS Safety Report 5268250-2 (Version None)
Quarter: 2007Q1

REPORT INFORMATION
  Report Type: 
  Country: None (occurrence: None)
  Receive Date: 20070313
  Receipt Date: 20070302
  Transmission Date: 20070707
  Serious: No
  Sender: FDA-Public Use
  Company Number: 2007S1001318

PATIENT
  Age: 54 Year
  Sex: Female
  Weight: 77.1115 kg

DRUGS (12)
  1. PHENYTOIN SODIUM [Suspect]
     Indication: CONVULSION PROPHYLAXIS
     Dosage: 400 MG; DAILY; ORAL
     Route: 048
     Dates: end: 20070223
  2. OMEPRAZOLE [Concomitant]
  3. EVISTA [Concomitant]
  4. LIPITOR [Concomitant]
  5. DITROPAN XL [Concomitant]
  6. FLUOXETINE [Concomitant]
  7. DARVOCET-N 100 [Concomitant]
  8. VICOPROFEN [Concomitant]
  9. NAPHCON-A [Concomitant]
  10. OCEAN NASAL [Concomitant]
  11. NEOSPORIN /00038301/ [Concomitant]
  12. NASAREL /00456601/ [Concomitant]

REACTIONS (3)
  - ANTICONVULSANT DRUG LEVEL BELOW THERAPEUTIC [None]
  - GRAND MAL CONVULSION [None]
  - HEADACHE [None]
